FAERS Safety Report 6132186-5 (Version None)
Quarter: 2009Q1

REPORT INFORMATION
  Report Type: 
  Country: None (occurrence: None)
  Receive Date: 20090325
  Receipt Date: 20090320
  Transmission Date: 20090719
  Serious: Yes (Death)
  Sender: FDA-Public Use
  Company Number: B0566394A

PATIENT
  Age: 44 Year
  Sex: Male

DRUGS (6)
  1. TELZIR [Suspect]
     Indication: HIV INFECTION
     Route: 048
  2. EPIVIR [Suspect]
     Indication: HIV INFECTION
     Route: 048
     Dates: start: 20060601
  3. RETROVIR [Suspect]
     Indication: HIV INFECTION
     Route: 048
     Dates: start: 20060601
  4. ZIAGEN [Suspect]
     Indication: HIV INFECTION
     Route: 048
     Dates: start: 20060601
  5. TRIZIVIR [Suspect]
     Indication: HIV INFECTION
     Route: 048
     Dates: end: 20060601
  6. NORVIR [Suspect]
     Indication: HIV INFECTION
     Route: 048

REACTIONS (1)
  - DEATH [None]
